FAERS Safety Report 6500436-9 (Version None)
Quarter: 2009Q4

REPORT INFORMATION
  Report Type: 
  Country: None (occurrence: None)
  Receive Date: 20091127
  Receipt Date: 20090424
  Transmission Date: 20100525
  Serious: Yes (Other)
  Sender: FDA-Public Use
  Company Number: WAES 0702USA01295

PATIENT
  Age: 61 Year
  Sex: Female

DRUGS (1)
  1. FOSAMAX [Suspect]
     Dosage: PO
     Route: 048
     Dates: start: 20000101, end: 20060906

REACTIONS (7)
  - BLOOD CHOLESTEROL INCREASED [None]
  - INFECTION [None]
  - NERVE INJURY [None]
  - OSTEONECROSIS [None]
  - SENSORY LOSS [None]
  - TOOTH DISORDER [None]
  - TOOTH LOSS [None]
